FAERS Safety Report 4518463-X (Version None)
Quarter: 2004Q4

REPORT INFORMATION
  Report Type: 
  Country: None (occurrence: None)
  Receive Date: 20041202
  Receipt Date: 20041123
  Transmission Date: 20050328
  Serious: Yes (Hospitalization)
  Sender: FDA-Public Use
  Company Number: CIP04001905

PATIENT
  Age: 51 Year
  Sex: Female

DRUGS (4)
  1. ACTONEL [Suspect]
     Indication: OSTEOPOROSIS
     Dosage: 35 MG ONCE WEEKLY, ORAL
     Route: 048
     Dates: start: 20030101, end: 20040824
  2. PROGESTERONE W/ESTROGENS/ (ESTROGEN NOS, PROGESTERONE) [Concomitant]
  3. FLONASE [Concomitant]
  4. PROTON PUMP INHIBITORS [Concomitant]

REACTIONS (5)
  - DEPRESSED LEVEL OF CONSCIOUSNESS [None]
  - HYPERVENTILATION [None]
  - HYPOCALCAEMIA [None]
  - PARAESTHESIA [None]
  - VIRAL INFECTION [None]
